FAERS Safety Report 13245086 (Version 1)
Quarter: 2017Q1

REPORT INFORMATION
  Report Type: Other
  Country: GB (occurrence: QA)
  Receive Date: 20170216
  Receipt Date: 20170216
  Transmission Date: 20170428
  Serious: Yes (Other)
  Sender: FDA-Public Use
  Company Number: QA-INTERNATIONAL MEDICATION SYSTEMS, LIMITED-1063242

PATIENT
  Age: 18 Year
  Sex: Female

DRUGS (6)
  1. GLUCOSE 1.36% [Suspect]
     Active Substance: DEXTROSE MONOHYDRATE
  2. ICODEXTRIN [Concomitant]
     Active Substance: ICODEXTRIN
  3. ICODEXTRIN [Concomitant]
     Active Substance: ICODEXTRIN
  4. GLUCOSE 3.86% [Suspect]
     Active Substance: DEXTROSE MONOHYDRATE
  5. GLUCOSE 2.27% [Suspect]
     Active Substance: DEXTROSE MONOHYDRATE
  6. GLUCOSE 1.36% [Suspect]
     Active Substance: DEXTROSE MONOHYDRATE

REACTIONS (2)
  - Pleural effusion [Recovering/Resolving]
  - Peritoneal dialysis complication [Recovering/Resolving]
